FAERS Safety Report 16947238 (Version 1)
Quarter: 2019Q4

REPORT INFORMATION
  Report Type: Spontaneous
  Country: US (occurrence: US)
  Receive Date: 20191022
  Receipt Date: 20191022
  Transmission Date: 20200122
  Serious: No
  Sender: FDA-Public Use
  Company Number: US-BECTON DICKINSON-2019BDN00209

PATIENT
  Age: 56 Year
  Sex: Male
  Weight: 107.7 kg

DRUGS (1)
  1. CHLORAPREP WITH TINT [Suspect]
     Active Substance: CHLORHEXIDINE GLUCONATE\ISOPROPYL ALCOHOL
     Indication: INFECTION PROPHYLAXIS
     Dosage: UNK
     Route: 061
     Dates: start: 20190412, end: 20190412

REACTIONS (5)
  - Application site hyperaesthesia [Recovered/Resolved]
  - Application site pain [Recovered/Resolved]
  - Application site pruritus [Recovered/Resolved]
  - Application site urticaria [Recovered/Resolved]
  - Temperature intolerance [Recovered/Resolved]

NARRATIVE: CASE EVENT DATE: 2019
